FAERS Safety Report 10718406 (Version 1)
Quarter: 2015Q1

REPORT INFORMATION
  Report Type: Spontaneous
  Country: CA (occurrence: CA)
  Receive Date: 20150119
  Receipt Date: 20150119
  Transmission Date: 20150721
  Serious: Yes (Hospitalization, Other)
  Sender: FDA-Public Use
  Company Number: CA-AMGEN-CANSP2015003393

PATIENT
  Age: 67 Year
  Sex: Male
  Weight: 93 kg

DRUGS (9)
  1. CALCIUM [Concomitant]
     Active Substance: CALCIUM
  2. PANTOPRAZOLE [Concomitant]
     Active Substance: PANTOPRAZOLE SODIUM
  3. PERCOCET                           /00446701/ [Concomitant]
     Active Substance: ACETAMINOPHEN\OXYCODONE HYDROCHLORIDE\OXYCODONE TEREPHTHALATE
  4. BISOPROLOL [Concomitant]
     Active Substance: BISOPROLOL
  5. VITAMIN D                          /00107901/ [Concomitant]
     Active Substance: ERGOCALCIFEROL
  6. XGEVA [Suspect]
     Active Substance: DENOSUMAB
     Indication: PRODUCT USED FOR UNKNOWN INDICATION
     Dosage: 120 MG, Q4WK
     Route: 058
  7. FENTANYL. [Concomitant]
     Active Substance: FENTANYL
  8. PERINDOPRIL [Concomitant]
     Active Substance: PERINDOPRIL
  9. LEUPROLIDE                         /00726901/ [Concomitant]

REACTIONS (4)
  - Osteonecrosis [Unknown]
  - Pain in jaw [Unknown]
  - Osteomyelitis [Unknown]
  - Infection [Unknown]
